FAERS Safety Report 5582857-4 (Version None)
Quarter: 2008Q1

REPORT INFORMATION
  Report Type: 
  Country: None (occurrence: None)
  Receive Date: 20080107
  Receipt Date: 20071231
  Transmission Date: 20080703
  Serious: Yes (Hospitalization, Other)
  Sender: FDA-Public Use
  Company Number: US-ROCHE-509530

PATIENT
  Age: 16 Year
  Sex: Male
  Weight: 90.7 kg

DRUGS (2)
  1. ACCUTANE [Suspect]
     Indication: ACNE
     Route: 065
     Dates: start: 19980313, end: 19980701
  2. ALBUTEROL [Concomitant]
     Indication: ASTHMA

REACTIONS (12)
  - ANAL ABSCESS [None]
  - ANAL FISTULA [None]
  - BLOOD ALKALINE PHOSPHATASE INCREASED [None]
  - BLOOD TRIGLYCERIDES INCREASED [None]
  - CROHN'S DISEASE [None]
  - DEPRESSION [None]
  - DRY SKIN [None]
  - EPISTAXIS [None]
  - HAEMORRHOIDS [None]
  - INFLAMMATORY BOWEL DISEASE [None]
  - LYMPHOCYTE COUNT DECREASED [None]
  - WEIGHT DECREASED [None]
